FAERS Safety Report 9160134 (Version 1)
Quarter: 2013Q1

REPORT INFORMATION
  Report Type: Spontaneous
  Country: US (occurrence: None)
  Receive Date: 20130221
  Receipt Date: 20130221
  Transmission Date: 20140127
  Serious: Yes (Hospitalization)
  Sender: FDA-Public Use
  Company Number: AUR-APL-2013-01450

PATIENT
  Age: 80 Year
  Sex: Female

DRUGS (1)
  1. CEFTRIAXONE (CEFTRIAXONE) [Suspect]
     Indication: PRODUCT USED FOR UNKNOWN INDICATION
     Route: 042
     Dates: start: 20120223

REACTIONS (9)
  - Jarisch-Herxheimer reaction [None]
  - Hyponatraemia [None]
  - Spirochaetal infection [None]
  - Encephalitis [None]
  - Gait disturbance [None]
  - Hearing impaired [None]
  - Decreased appetite [None]
  - Cardiac murmur [None]
  - Lyme disease [None]
